FAERS Safety Report 6582763-2 (Version None)
Quarter: 2010Q1

REPORT INFORMATION
  Report Type: 
  Country: None (occurrence: None)
  Receive Date: 20100216
  Receipt Date: 20100204
  Transmission Date: 20100710
  Serious: Yes (Other)
  Sender: FDA-Public Use
  Company Number: US-PFIZER INC-2008099121

PATIENT
  Sex: Female
  Weight: 47 kg

DRUGS (16)
  1. CHANTIX [Suspect]
     Indication: SMOKING CESSATION THERAPY
     Route: 048
     Dates: start: 20080101, end: 20080101
  2. CHANTIX [Suspect]
     Indication: NICOTINE DEPENDENCE
  3. XANAX [Concomitant]
  4. SUCRALFATE [Concomitant]
  5. DETROL LA [Concomitant]
  6. LAMICTAL [Concomitant]
  7. ESTRADIOL [Concomitant]
  8. ADVAIR DISKUS 100/50 [Concomitant]
  9. COMBIVENT [Concomitant]
  10. SOMA [Concomitant]
  11. ALBUTEROL [Concomitant]
  12. LYRICA [Concomitant]
  13. PERCOCET [Concomitant]
  14. ADDERALL 30 [Concomitant]
  15. HYDROXYZINE [Concomitant]
  16. OMEPRAZOLE [Concomitant]

REACTIONS (4)
  - DEPRESSION [None]
  - HALLUCINATION, VISUAL [None]
  - INJURY [None]
  - LOSS OF CONSCIOUSNESS [None]
